FAERS Safety Report 4374063-6 (Version None)
Quarter: 2004Q2

REPORT INFORMATION
  Report Type: 
  Country: None (occurrence: None)
  Receive Date: 20040603
  Receipt Date: 20030401
  Transmission Date: 20050107
  Serious: Yes (Death, Hospitalization)
  Sender: FDA-Public Use
  Company Number: FR_030402262

PATIENT
  Age: 39 Year
  Sex: Female

DRUGS (4)
  1. ZYPREXA [Suspect]
     Indication: SCHIZOPHRENIA
     Dosage: 17.5 MG/DAY
     Dates: start: 20030320
  2. STILNOX (ZOLPIDEM) [Concomitant]
  3. CLOPIXOL -  SLOW RELEASE (ZUCLOPENTHIXOL DECANOATE) [Concomitant]
  4. TIAPRIDAL (TIAPRIDE) [Concomitant]

REACTIONS (5)
  - COMA [None]
  - INTENTIONAL OVERDOSE [None]
  - MEDICATION ERROR [None]
  - PNEUMONIA ASPIRATION [None]
  - SLEEP DISORDER [None]
